FAERS Safety Report 5696542-1 (Version None)
Quarter: 2008Q2

REPORT INFORMATION
  Report Type: 
  Country: None (occurrence: None)
  Receive Date: 20080404
  Receipt Date: 20080404
  Transmission Date: 20081010
  Serious: No
  Sender: FDA-Public Use
  Company Number: None

PATIENT
  Age: 7 Year
  Sex: Male
  Weight: 23.1334 kg

DRUGS (1)
  1. SINGULAIR [Suspect]
     Indication: ASTHMA
     Dosage: ONE TABLET EVERY NIGHT PO
     Route: 048
     Dates: start: 20031101, end: 20080327

REACTIONS (5)
  - AGGRESSION [None]
  - DEPRESSED MOOD [None]
  - ILL-DEFINED DISORDER [None]
  - IRRITABILITY [None]
  - NIGHTMARE [None]
